FAERS Safety Report 14533221 (Version 1)
Quarter: 2018Q1

REPORT INFORMATION
  Report Type: Spontaneous
  Country: US (occurrence: US)
  Receive Date: 20180215
  Receipt Date: 20180215
  Transmission Date: 20180509
  Serious: No
  Sender: FDA-Public Use
  Company Number: US-VIFOR (INTERNATIONAL) INC.-VIT-2018-00171

PATIENT
  Age: 71 Year
  Sex: Female

DRUGS (10)
  1. LASIX [Concomitant]
     Active Substance: FUROSEMIDE
  2. ARAVA [Concomitant]
     Active Substance: LEFLUNOMIDE
  3. ORENCIA [Concomitant]
     Active Substance: ABATACEPT
  4. NORCO [Concomitant]
     Active Substance: ACETAMINOPHEN\HYDROCODONE BITARTRATE
  5. ULTRAM [Concomitant]
     Active Substance: TRAMADOL HYDROCHLORIDE
  6. VELTASSA [Suspect]
     Active Substance: PATIROMER
     Route: 048
  7. LIDODERM [Concomitant]
     Active Substance: LIDOCAINE
  8. VELTASSA [Suspect]
     Active Substance: PATIROMER
     Indication: PRODUCT USED FOR UNKNOWN INDICATION
     Route: 048
     Dates: start: 20170926
  9. COLCRYS [Concomitant]
     Active Substance: COLCHICINE
  10. ROCALTROL [Concomitant]
     Active Substance: CALCITRIOL

REACTIONS (3)
  - Off label use [Unknown]
  - Malaise [Unknown]
  - Blood potassium decreased [Unknown]

NARRATIVE: CASE EVENT DATE: 20180104
